FAERS Safety Report 8726255 (Version 3)
Quarter: 2012Q4

REPORT INFORMATION
  Report Type: 
  Country: US (occurrence: US)
  Receive Date: 20120816
  Receipt Date: 20121101
  Transmission Date: 20130627
  Serious: Yes (Death, Other)
  Sender: FDA-Public Use
  Company Number: US-PFIZER INC-2012197333

PATIENT
  Age: 74 Year
  Sex: Female

DRUGS (2)
  1. REVATIO [Suspect]
     Indication: PULMONARY HYPERTENSION
     Dosage: 20 mg 1/2 tablet twice daily
     Dates: start: 20120426
  2. REVATIO [Suspect]
     Indication: CARDIOMYOPATHY PRIMARY

REACTIONS (2)
  - Renal failure chronic [Fatal]
  - Cardiac failure congestive [Fatal]
